FAERS Safety Report 7432442-4 (Version None)
Quarter: 2011Q2

REPORT INFORMATION
  Report Type: 
  Country: None (occurrence: None)
  Receive Date: 20110422
  Receipt Date: 20110413
  Transmission Date: 20111010
  Serious: Yes (Other)
  Sender: FDA-Public Use
  Company Number: SA-ASTRAZENECA-2011SE21299

PATIENT
  Age: 83 Year
  Sex: Male
  Weight: 59 kg

DRUGS (7)
  1. FENTANYL [Concomitant]
     Indication: SPINAL ANAESTHESIA
     Route: 037
  2. FENTANYL [Concomitant]
     Dosage: 15 UG/ML AT RATE OF 5 ML/H
     Route: 008
  3. BUPIVACAINE [Suspect]
     Dosage: AT RATE 5 ML/H
     Route: 008
  4. HYPERBARIC BUPIVACAINE [Suspect]
     Indication: SPINAL ANAESTHESIA
     Route: 037
  5. HYPERBARIC BUPIVACAINE [Suspect]
     Dosage: 5 ML/H
     Route: 037
  6. RINGER'S [Concomitant]
  7. LOW MOLECULAR WEIGHT HEPARIN [Concomitant]

REACTIONS (1)
  - CAUDA EQUINA SYNDROME [None]
